FAERS Safety Report 6602746-3 (Version None)
Quarter: 2010Q1

REPORT INFORMATION
  Report Type: 
  Country: None (occurrence: None)
  Receive Date: 20100225
  Receipt Date: 20090515
  Transmission Date: 20100710
  Serious: No
  Sender: FDA-Public Use
  Company Number: US-BAUSCH-2009BL002405

PATIENT
  Age: 65 Year
  Sex: Female

DRUGS (1)
  1. BACITRACIN TOPICAL OINTMENT [Suspect]
     Indication: BLEPHARITIS
     Route: 047
     Dates: start: 20090514, end: 20090514

REACTIONS (3)
  - BLEPHARITIS [None]
  - CONDITION AGGRAVATED [None]
  - HYPERSENSITIVITY [None]
